FAERS Safety Report 11700432 (Version 1)
Quarter: 2015Q4

REPORT INFORMATION
  Report Type: Spontaneous
  Country: US (occurrence: None)
  Receive Date: 20151104
  Receipt Date: 20151104
  Transmission Date: 20160304
  Serious: Yes (Other)
  Sender: FDA-Public Use
  Company Number: None

PATIENT
  Age: 41 Year
  Sex: Male
  Weight: 84.82 kg

DRUGS (2)
  1. EX-LAX MAXIMUM STRENGTH STIMULANT LAXATIVE [Concomitant]
     Active Substance: SENNOSIDES
  2. QUETIAPINE FUMARATE 200 ML [Suspect]
     Active Substance: QUETIAPINE FUMARATE
     Dosage: AT BEDTIME; TAKEN BY MOUTH

REACTIONS (5)
  - Constipation [None]
  - Product quality issue [None]
  - Intestinal obstruction [None]
  - Malaise [None]
  - Product substitution issue [None]

NARRATIVE: CASE EVENT DATE: 20151102
